FAERS Safety Report 12109227 (Version 2)
Quarter: 2016Q2

REPORT INFORMATION
  Report Type: Spontaneous
  Country: US (occurrence: US)
  Receive Date: 20160224
  Receipt Date: 20160517
  Transmission Date: 20160815
  Serious: No
  Sender: FDA-Public Use
  Company Number: US-PFIZER INC-2016052939

PATIENT
  Age: 7 Year
  Sex: Male
  Weight: 21.77 kg

DRUGS (1)
  1. QUILLIVANT XR [Suspect]
     Active Substance: METHYLPHENIDATE HYDROCHLORIDE
     Indication: ATTENTION DEFICIT/HYPERACTIVITY DISORDER
     Dosage: 25MG/5ML, 1X/DAY
     Dates: start: 201410

REACTIONS (7)
  - Drug dispensing error [Unknown]
  - Discomfort [Recovered/Resolved]
  - Incorrect dose administered [Unknown]
  - Dysgraphia [Unknown]
  - Disturbance in attention [Recovered/Resolved]
  - Impatience [Unknown]
  - Anger [Recovered/Resolved]

NARRATIVE: CASE EVENT DATE: 201509
